FAERS Safety Report 16962217 (Version 1)
Quarter: 2019Q4

REPORT INFORMATION
  Report Type: Spontaneous
  Country: US (occurrence: US)
  Receive Date: 20190907
  Receipt Date: 20190907
  Transmission Date: 20200122
  Serious: No
  Sender: FDA-Public Use
  Company Number: None

PATIENT
  Age: 56 Year
  Sex: Female

DRUGS (2)
  1. VERZENIO [Concomitant]
     Active Substance: ABEMACICLIB
     Route: 048
     Dates: start: 201908
  2. LETROZOLE. [Concomitant]
     Active Substance: LETROZOLE

REACTIONS (2)
  - Laboratory test abnormal [None]
  - Product dose omission [None]

NARRATIVE: CASE EVENT DATE: 20190907
